FAERS Safety Report 23696732 (Version 1)
Quarter: 2024Q2

REPORT INFORMATION
  Report Type: Spontaneous
  Country: US (occurrence: US)
  Receive Date: 20240402
  Receipt Date: 20240402
  Transmission Date: 20240716
  Serious: No
  Sender: FDA-Public Use
  Company Number: US-Prasco Laboratories-PRAS20240812

PATIENT
  Age: 64 Year
  Sex: Female

DRUGS (1)
  1. ESTRADIOL [Suspect]
     Active Substance: ESTRADIOL
     Indication: Menopausal symptoms
     Dosage: 1/2 APPLICATOR FULL DAILY FOR 14 DAYS (2 GRAMS EACH DAY), THEN SPARINGLY AS LITTLE AS A DAB ON THE F
     Route: 067
     Dates: start: 202403

REACTIONS (3)
  - Application site pain [Not Recovered/Not Resolved]
  - Off label use [None]
  - Product container issue [None]

NARRATIVE: CASE EVENT DATE: 20240301
